FAERS Safety Report 19412783 (Version 6)
Quarter: 2024Q2

REPORT INFORMATION
  Report Type: Spontaneous
  Country: US (occurrence: US)
  Receive Date: 20210614
  Receipt Date: 20240405
  Transmission Date: 20240716
  Serious: Yes (Hospitalization)
  Sender: FDA-Public Use
  Company Number: US-PFIZER INC-2020447506

PATIENT
  Age: 82 Year
  Sex: Female

DRUGS (1)
  1. IBRANCE [Suspect]
     Active Substance: PALBOCICLIB
     Indication: Breast cancer female
     Dosage: 125 MG
     Dates: start: 20220128

REACTIONS (6)
  - Malaise [Unknown]
  - Alopecia [Unknown]
  - Weight increased [Unknown]
  - Tooth fracture [Unknown]
  - Gastrointestinal disorder [Unknown]
  - Memory impairment [Unknown]
